FAERS Safety Report 7195663-4 (Version None)
Quarter: 2010Q4

REPORT INFORMATION
  Report Type: 
  Country: None (occurrence: None)
  Receive Date: 20101223
  Receipt Date: 20101006
  Transmission Date: 20110411
  Serious: No
  Sender: FDA-Public Use
  Company Number: US-AMGEN-KDL442659

PATIENT

DRUGS (4)
  1. ENBREL [Suspect]
     Indication: RHEUMATOID ARTHRITIS
     Dosage: 50 MG, QWK
     Route: 058
     Dates: start: 20100408
  2. PREDNISONE [Concomitant]
     Dosage: 5 MG, QD
     Route: 048
  3. ACETAMINOPHEN [Concomitant]
     Dosage: 500 MG, QD
     Route: 048
  4. MULTI-VITAMINS [Concomitant]
     Dosage: UNK UNK, QD
     Route: 048

REACTIONS (11)
  - ADVERSE DRUG REACTION [None]
  - DEFORMITY [None]
  - DISABILITY [None]
  - GINGIVAL DISORDER [None]
  - GRIP STRENGTH DECREASED [None]
  - HYPOKINESIA [None]
  - INJECTION SITE RASH [None]
  - INJECTION SITE REACTION [None]
  - JOINT CONTRACTURE [None]
  - JUVENILE ARTHRITIS [None]
  - RASH [None]
